FAERS Safety Report 23170782 (Version 4)
Quarter: 2024Q1

REPORT INFORMATION
  Report Type: Report from Study
  Country: NL (occurrence: NL)
  Receive Date: 20231110
  Receipt Date: 20240103
  Transmission Date: 20240410
  Serious: Yes (Hospitalization)
  Sender: FDA-Public Use
  Company Number: NL-Korea IPSEN-2023-25400

PATIENT
  Age: 42 Year
  Sex: Female

DRUGS (3)
  1. LANREOTIDE ACETATE [Suspect]
     Active Substance: LANREOTIDE ACETATE
     Indication: Gastroenteropancreatic neuroendocrine tumour disease
     Dosage: 120 MG, EVERY 4 WEEKS
     Route: 058
     Dates: start: 20230621
  2. LANREOTIDE ACETATE [Suspect]
     Active Substance: LANREOTIDE ACETATE
     Route: 058
     Dates: start: 20231009
  3. LANREOTIDE ACETATE [Suspect]
     Active Substance: LANREOTIDE ACETATE
     Route: 058
     Dates: start: 20231107

REACTIONS (2)
  - Post procedural complication [Recovering/Resolving]
  - Post procedural inflammation [Recovering/Resolving]

NARRATIVE: CASE EVENT DATE: 20231207
